FAERS Safety Report 18029781 (Version 1)
Quarter: 2020Q3

REPORT INFORMATION
  Report Type: Report from Study
  Country: None (occurrence: AU)
  Receive Date: 20200715
  Receipt Date: 20200715
  Transmission Date: 20201103
  Serious: Yes (Hospitalization)
  Sender: FDA-Public Use
  Company Number: AU-ABBVIE-20P-008-3458325-00

PATIENT
  Age: 77 Year
  Sex: Male

DRUGS (50)
  1. FILGRASTIM [Concomitant]
     Active Substance: FILGRASTIM
     Indication: CHEMOTHERAPY
     Dates: start: 20200408, end: 20200424
  2. PHOSPHATE SANDOZ [Concomitant]
     Active Substance: SODIUM PHOSPHATE, MONOBASIC, ANHYDROUS
     Indication: HYPOPHOSPHATAEMIA
     Dates: start: 20200329, end: 20200417
  3. NOVORAPID [Concomitant]
     Active Substance: INSULIN ASPART
     Indication: HYPOGLYCAEMIA
     Dates: start: 20200326, end: 20200423
  4. CETIRIZINE [Concomitant]
     Active Substance: CETIRIZINE HYDROCHLORIDE
     Indication: PLATELET TRANSFUSION
  5. MEROPENEM. [Concomitant]
     Active Substance: MEROPENEM
     Indication: BLOOD CULTURE
  6. GLICLAZIDE MR [Concomitant]
     Active Substance: GLICLAZIDE
     Indication: HYPERGLYCAEMIA
     Dates: start: 20200423, end: 20200610
  7. SODIBIC [Concomitant]
     Indication: DENTAL DISORDER PROPHYLAXIS
     Dosage: MOUTH WASH
     Route: 048
  8. TAZOCIN [Concomitant]
     Active Substance: PIPERACILLIN SODIUM\TAZOBACTAM SODIUM
     Indication: FEBRILE NEUTROPENIA
     Dates: start: 20200326, end: 20200608
  9. LANTUS [Concomitant]
     Active Substance: INSULIN GLARGINE
     Indication: HYPERGLYCAEMIA
     Dates: start: 20200409, end: 20200422
  10. SLOW K [Concomitant]
     Active Substance: POTASSIUM CHLORIDE
     Indication: HYPOKALAEMIA
     Route: 048
     Dates: start: 20200406
  11. HYDROCORTISONE. [Concomitant]
     Active Substance: HYDROCORTISONE
     Indication: PLATELET TRANSFUSION
  12. METRONIDAZOLE. [Concomitant]
     Active Substance: METRONIDAZOLE
     Indication: ESCHERICHIA BACTERAEMIA
     Dates: start: 20200417, end: 20200420
  13. METFORMIN [Concomitant]
     Active Substance: METFORMIN HYDROCHLORIDE
     Indication: HYPERGLYCAEMIA
     Route: 048
     Dates: start: 20200423, end: 20200521
  14. GLUCOSE [Concomitant]
     Active Substance: DEXTROSE
     Indication: HYPERGLYCAEMIA
     Dates: start: 20200424, end: 20200424
  15. ONDANSETRON [Concomitant]
     Active Substance: ONDANSETRON
     Indication: NAUSEA
     Dates: start: 20200525
  16. TRANEXAMIC ACID. [Concomitant]
     Active Substance: TRANEXAMIC ACID
     Indication: PLATELET COUNT DECREASED
     Dates: start: 20200614
  17. TAZOCIN [Concomitant]
     Active Substance: PIPERACILLIN SODIUM\TAZOBACTAM SODIUM
     Indication: SEPSIS
  18. FILGRASTIM [Concomitant]
     Active Substance: FILGRASTIM
     Indication: WHITE BLOOD CELL COUNT INCREASED
  19. HYDROCORTISONE. [Concomitant]
     Active Substance: HYDROCORTISONE
     Indication: PREMEDICATION
     Dates: start: 20200410
  20. POTASSIUM CHLORIDE. [Concomitant]
     Active Substance: POTASSIUM CHLORIDE
     Indication: HYPOKALAEMIA
     Dates: start: 20200331, end: 20200419
  21. PHOSPHATE IONS [Concomitant]
     Indication: HYPOPHOSPHATAEMIA
     Dates: start: 20200416, end: 20200423
  22. MOVICOL [Concomitant]
     Active Substance: POLYETHYLENE GLYCOL 3350\POTASSIUM CHLORIDE\SODIUM BICARBONATE\SODIUM CHLORIDE
     Indication: CONSTIPATION
     Dates: start: 20200528
  23. PANTOPRAZOLE [Concomitant]
     Active Substance: PANTOPRAZOLE
     Indication: GASTROINTESTINAL DISORDER PROPHYLAXIS
     Route: 048
     Dates: start: 20200325
  24. PENTHROX [Concomitant]
     Active Substance: METHOXYFLURANE
     Indication: ASPIRATION BONE MARROW
     Dates: start: 20200325, end: 20200615
  25. CEFEPIME [Concomitant]
     Active Substance: CEFEPIME HYDROCHLORIDE
     Indication: FEBRILE NEUTROPENIA
  26. HYDROCORTISONE. [Concomitant]
     Active Substance: HYDROCORTISONE
     Indication: PREMEDICATION
  27. MEROPENEM. [Concomitant]
     Active Substance: MEROPENEM
     Indication: ESCHERICHIA BACTERAEMIA
     Dates: start: 20200413, end: 20200701
  28. GLICLAZIDE MR [Concomitant]
     Active Substance: GLICLAZIDE
     Indication: DIABETES MELLITUS
  29. GRANULOCYTE COLONY?STIMULATING FACTOR [Concomitant]
     Active Substance: GRANULOCYTE COLONY-STIMULATING FACTOR NOS
     Indication: NEUTROPENIA
     Dates: start: 20200609
  30. ALLOPURINOL. [Concomitant]
     Active Substance: ALLOPURINOL
     Indication: PROPHYLAXIS
     Dates: start: 20200324, end: 20200405
  31. CETIRIZINE [Concomitant]
     Active Substance: CETIRIZINE HYDROCHLORIDE
     Indication: PREMEDICATION
     Dates: start: 20200405
  32. BIOMAG [Concomitant]
     Indication: HYPOMAGNESAEMIA
     Route: 048
     Dates: start: 20200418
  33. VENETOCLAX. [Suspect]
     Active Substance: VENETOCLAX
     Indication: ACUTE MYELOID LEUKAEMIA
     Route: 048
     Dates: start: 20200506, end: 20200519
  34. VALACYCLOVIR [Concomitant]
     Active Substance: VALACYCLOVIR HYDROCHLORIDE
     Indication: ANTIVIRAL PROPHYLAXIS
     Route: 048
     Dates: start: 20200325
  35. ORPHENADRINE [Concomitant]
     Active Substance: ORPHENADRINE
     Indication: PAIN
     Dates: start: 20200329, end: 20200329
  36. PARACETAMOL [Concomitant]
     Active Substance: ACETAMINOPHEN
     Indication: PAIN
     Dates: start: 20200329
  37. CEFEPIME [Concomitant]
     Active Substance: CEFEPIME HYDROCHLORIDE
     Indication: ESCHERICHIA BACTERAEMIA
     Dates: start: 20200417, end: 20200611
  38. METOCLOPRAMIDE. [Concomitant]
     Active Substance: METOCLOPRAMIDE
     Indication: NAUSEA
     Dates: start: 20200511
  39. HYDROXYUREA. [Concomitant]
     Active Substance: HYDROXYUREA
     Indication: WHITE BLOOD CELL COUNT ABNORMAL
     Dates: start: 20200324, end: 20200327
  40. MAGMIN [Concomitant]
     Active Substance: MAGNESIUM ASPARTATE
     Indication: HYPOMAGNESAEMIA
     Dates: start: 20200325, end: 20200325
  41. FRUSEMIDE [Concomitant]
     Active Substance: FUROSEMIDE
     Indication: FLUID OVERLOAD
     Dates: start: 20200403, end: 20200612
  42. STEMETIL [Concomitant]
     Active Substance: PROCHLORPERAZINE
     Indication: NAUSEA
     Dates: start: 20200402, end: 20200412
  43. PARACETAMOL [Concomitant]
     Active Substance: ACETAMINOPHEN
     Indication: PYREXIA
  44. FESS [Concomitant]
     Indication: NASAL CONGESTION
  45. AMILORIDE [Concomitant]
     Active Substance: AMILORIDE
     Indication: FLUID OVERLOAD
     Dates: start: 20200412, end: 20200612
  46. HYDROCORTISONE. [Concomitant]
     Active Substance: HYDROCORTISONE
     Indication: PLATELET TRANSFUSION
  47. POSACONAZOLE [Concomitant]
     Active Substance: POSACONAZOLE
     Indication: ANTIFUNGAL PROPHYLAXIS
     Route: 048
     Dates: start: 20200325
  48. BUSCOPAN [Concomitant]
     Active Substance: BUTYLSCOPOLAMINE BROMIDE
     Indication: ABDOMINAL PAIN
     Dates: start: 20200404, end: 20200404
  49. CEFTRIAXONE. [Concomitant]
     Active Substance: CEFTRIAXONE
     Indication: ESCHERICHIA BACTERAEMIA
     Dates: start: 20200423, end: 20200430
  50. AMBISOME [Concomitant]
     Active Substance: AMPHOTERICIN B
     Indication: ANTIFUNGAL PROPHYLAXIS
     Dates: start: 20200504, end: 20200520

REACTIONS (2)
  - Enterobacter sepsis [Recovered/Resolved]
  - Febrile neutropenia [Not Recovered/Not Resolved]

NARRATIVE: CASE EVENT DATE: 20200623
